FAERS Safety Report 5910169-5 (Version None)
Quarter: 2008Q4

REPORT INFORMATION
  Report Type: 
  Country: None (occurrence: None)
  Receive Date: 20081007
  Receipt Date: 20071030
  Transmission Date: 20090506
  Serious: Yes (Other)
  Sender: FDA-Public Use
  Company Number: US-ASTRAZENECA-2007UW22351

PATIENT
  Age: 71 Year
  Sex: Female
  Weight: 68 kg

DRUGS (11)
  1. ARIMIDEX [Suspect]
     Indication: BREAST CANCER
     Route: 048
     Dates: start: 20040101
  2. ALLEGRA [Concomitant]
  3. ARMOUR THYROID [Concomitant]
  4. IODORAL [Concomitant]
  5. SELENIUM [Concomitant]
  6. MULTIVITAMIN WITHOUT MINERALS [Concomitant]
  7. COSAMIN DS [Concomitant]
  8. CALCIUM [Concomitant]
  9. MAGNESIUM SULFATE [Concomitant]
  10. ZINC [Concomitant]
  11. ASPIRIN [Concomitant]

REACTIONS (2)
  - BLOOD CHOLESTEROL INCREASED [None]
  - BLOOD PRESSURE INCREASED [None]
